FAERS Safety Report 6177464-9 (Version None)
Quarter: 2009Q2

REPORT INFORMATION
  Report Type: 
  Country: None (occurrence: None)
  Receive Date: 20090501
  Receipt Date: 20090501
  Transmission Date: 20091009
  Serious: Yes (Life-Threatening, Hospitalization)
  Sender: FDA-Public Use
  Company Number: None

PATIENT
  Age: 73 Year
  Sex: Male
  Weight: 90.7 kg

DRUGS (1)
  1. LANTUS [Suspect]
     Indication: DIABETES MELLITUS
     Dosage: 40 UNITS SQ QD
     Route: 058

REACTIONS (3)
  - BLOOD GLUCOSE DECREASED [None]
  - HYPOTHERMIA [None]
  - UNRESPONSIVE TO STIMULI [None]
